FAERS Safety Report 17521151 (Version 1)
Quarter: 2020Q1

REPORT INFORMATION
  Report Type: Spontaneous
  Country: US (occurrence: US)
  Receive Date: 20200310
  Receipt Date: 20200310
  Transmission Date: 20200409
  Serious: Yes (Death)
  Sender: FDA-Public Use
  Company Number: None

PATIENT
  Age: 68 Year
  Sex: Female
  Weight: 126.2 kg

DRUGS (2)
  1. HEPARIN [Suspect]
     Active Substance: HEPARIN SODIUM
     Indication: THROMBOSIS PROPHYLAXIS
     Route: 058
     Dates: start: 20200217, end: 20200221
  2. ASPIRIN. [Concomitant]
     Active Substance: ASPIRIN
     Dates: start: 20200215, end: 20200221

REACTIONS (7)
  - Hypoxia [None]
  - Therapy cessation [None]
  - Pulmonary haemorrhage [None]
  - Alanine aminotransferase increased [None]
  - Aspartate aminotransferase increased [None]
  - Activated partial thromboplastin time prolonged [None]
  - International normalised ratio increased [None]

NARRATIVE: CASE EVENT DATE: 20200221
